FAERS Safety Report 4553075-3 (Version None)
Quarter: 2005Q1

REPORT INFORMATION
  Report Type: 
  Country: None (occurrence: None)
  Receive Date: 20050114
  Receipt Date: 20041117
  Transmission Date: 20050727
  Serious: Yes (Other)
  Sender: FDA-Public Use
  Company Number: PHNR2004AU01662

PATIENT
  Age: 34 Year
  Sex: Female

DRUGS (1)
  1. TEGRETOL [Suspect]
     Indication: COMPLEX PARTIAL SEIZURES
     Dosage: 200 MG, BID
     Route: 048
     Dates: start: 20021001

REACTIONS (1)
  - WEIGHT INCREASED [None]
